FAERS Safety Report 5033509-0 (Version None)
Quarter: 2006Q2

REPORT INFORMATION
  Report Type: 
  Country: None (occurrence: None)
  Receive Date: 20060623
  Receipt Date: 20060616
  Transmission Date: 20061013
  Serious: Yes (Other)
  Sender: FDA-Public Use
  Company Number: US-AVENTIS-200615290US

PATIENT
  Sex: Female

DRUGS (9)
  1. KETEK [Suspect]
     Indication: SINUSITIS
     Route: 048
     Dates: start: 20060523
  2. DARVOCET [Concomitant]
     Indication: BACK PAIN
     Dosage: DOSE: UNK
     Dates: start: 20060523
  3. LORTAB [Concomitant]
     Indication: BACK PAIN
     Route: 048
     Dates: start: 20060501
  4. ALLEGRA [Concomitant]
     Dosage: DOSE: UNK
  5. FLONASE [Concomitant]
     Dosage: DOSE: UNK
  6. TOPROL-XL [Concomitant]
     Dosage: DOSE: UNK
  7. FOSAMAX [Concomitant]
     Dosage: DOSE: UNK
  8. HYDROCHLOROTHIAZIDE [Concomitant]
     Dosage: DOSE: UNK
  9. AMITRIPTYLINE HCL [Concomitant]
     Dosage: DOSE: UNK

REACTIONS (5)
  - ALANINE AMINOTRANSFERASE INCREASED [None]
  - ASPARTATE AMINOTRANSFERASE INCREASED [None]
  - BLOOD ALKALINE PHOSPHATASE INCREASED [None]
  - DRUG INEFFECTIVE [None]
  - LIVER FUNCTION TEST ABNORMAL [None]
